FAERS Safety Report 7312455-3 (Version None)
Quarter: 2011Q1

REPORT INFORMATION
  Report Type: 
  Country: None (occurrence: None)
  Receive Date: 20110224
  Receipt Date: 20110214
  Transmission Date: 20110831
  Serious: Yes (Other)
  Sender: FDA-Public Use
  Company Number: PHHY2011US12594

PATIENT
  Age: 74 Year
  Sex: Male

DRUGS (2)
  1. ANTIBIOTICS [Concomitant]
     Indication: OSTEONECROSIS OF JAW
  2. ZOMETA [Suspect]
     Dosage: UNK
     Route: 042
     Dates: start: 20030101, end: 20050101

REACTIONS (8)
  - BONE DISORDER [None]
  - OROANTRAL FISTULA [None]
  - MUCOUS MEMBRANE DISORDER [None]
  - FLUID RETENTION [None]
  - CYST [None]
  - OSTEOSCLEROSIS [None]
  - BONE FRAGMENTATION [None]
  - OSTEONECROSIS OF JAW [None]
